FAERS Safety Report 6680101-8 (Version None)
Quarter: 2010Q2

REPORT INFORMATION
  Report Type: 
  Country: None (occurrence: None)
  Receive Date: 20100413
  Receipt Date: 20100405
  Transmission Date: 20101027
  Serious: Yes (Other)
  Sender: FDA-Public Use
  Company Number: JP-WATSON-2010-04538

PATIENT
  Sex: Female

DRUGS (2)
  1. IRINOTECAN HYDROCHLORIDE [Suspect]
     Indication: OVARIAN EPITHELIAL CANCER
     Dosage: 60MG/MM ON DAYS 1, 8, 15
  2. CISPLATIN [Suspect]
     Indication: OVARIAN EPITHELIAL CANCER
     Dosage: 60 MG/MM ON DAY 1 Q 28 DAYS

REACTIONS (1)
  - NEUROPATHY PERIPHERAL [None]
